FAERS Safety Report 22014500 (Version 3)
Quarter: 2023Q2

REPORT INFORMATION
  Report Type: Report from Study
  Country: US (occurrence: US)
  Receive Date: 20230221
  Receipt Date: 20230425
  Transmission Date: 20230721
  Serious: Yes (Hospitalization, Other)
  Sender: FDA-Public Use
  Company Number: US-ABBVIE-4312775

PATIENT
  Age: 51 Year
  Sex: Female

DRUGS (2)
  1. RINVOQ [Suspect]
     Active Substance: UPADACITINIB
     Indication: Rheumatoid arthritis
     Dosage: FORM STRENGTH: 15 MILLIGRAM
     Route: 048
     Dates: start: 20230105
  2. AMOXICILLIN [Concomitant]
     Active Substance: AMOXICILLIN
     Indication: Product used for unknown indication

REACTIONS (9)
  - Gallbladder operation [Unknown]
  - Pain in extremity [Unknown]
  - Pneumonia [Not Recovered/Not Resolved]
  - COVID-19 [Unknown]
  - Hospitalisation [Recovered/Resolved]
  - Oral infection [Unknown]
  - Nephropathy [Not Recovered/Not Resolved]
  - Fall [Unknown]
  - Paralysis [Unknown]

NARRATIVE: CASE EVENT DATE: 20230128
